FAERS Safety Report 9968455 (Version 1)
Quarter: 2014Q1

REPORT INFORMATION
  Report Type: Spontaneous
  Country: US (occurrence: US)
  Receive Date: 20140306
  Receipt Date: 20140306
  Transmission Date: 20141002
  Serious: No
  Sender: FDA-Public Use
  Company Number: US-ABBVIE-13P-163-1140638-00

PATIENT
  Age: 32 Year
  Sex: Male
  Weight: 61.29 kg

DRUGS (9)
  1. HUMIRA [Suspect]
     Indication: PSORIASIS
     Dates: end: 20130723
  2. HUMIRA [Suspect]
     Dates: start: 20130801, end: 20130801
  3. HUMIRA [Suspect]
     Dates: start: 20130806
  4. METHOTREXATE [Concomitant]
     Indication: PSORIASIS
  5. ABILIFY [Concomitant]
     Indication: DEPRESSION
  6. WELLBUTRIN [Concomitant]
     Indication: DEPRESSION
  7. REMERON [Concomitant]
     Indication: DEPRESSION
  8. KLONOPIN [Concomitant]
     Indication: PANIC ATTACK
  9. ADDERALL [Concomitant]
     Indication: ATTENTION DEFICIT/HYPERACTIVITY DISORDER

REACTIONS (4)
  - Drug dose omission [Unknown]
  - Psoriasis [Not Recovered/Not Resolved]
  - Psoriasis [Not Recovered/Not Resolved]
  - Drug ineffective [Unknown]
